FAERS Safety Report 7344889-5 (Version None)
Quarter: 2011Q1

REPORT INFORMATION
  Report Type: 
  Country: None (occurrence: None)
  Receive Date: 20110308
  Receipt Date: 20110308
  Transmission Date: 20110831
  Serious: Yes (Death, Life-Threatening, Hospitalization)
  Sender: FDA-Public Use
  Company Number: None

PATIENT
  Sex: Male
  Weight: 110 kg

DRUGS (10)
  1. FOLIC ACID [Concomitant]
  2. CRESTOR [Concomitant]
  3. PREDNISONE [Concomitant]
  4. HUMIRA [Suspect]
     Indication: RHEUMATOID ARTHRITIS
     Dosage: HUMIRA 40 MG EVERY OTHER WEEK SUBCUTANEOUSLY
     Route: 058
     Dates: start: 20080331, end: 20110215
  5. FLOMAX [Concomitant]
  6. LEVOTHYROXINE SODIUM [Concomitant]
  7. MUMIRA PEN [Concomitant]
  8. METHOTREXATE [Concomitant]
  9. LISINOPRIL [Concomitant]
  10. CENTRUM SILVER [Concomitant]

REACTIONS (5)
  - ENCEPHALITIS VIRAL [None]
  - UNRESPONSIVE TO STIMULI [None]
  - DYSPNOEA [None]
  - CONFUSIONAL STATE [None]
  - HAEMORRHAGE [None]
